APPROVED DRUG PRODUCT: DEXAIR
Active Ingredient: DEXAMETHASONE SODIUM PHOSPHATE
Strength: EQ 0.1% PHOSPHATE
Dosage Form/Route: SOLUTION/DROPS;OPHTHALMIC
Application: A088433 | Product #001
Applicant: PHARMAFAIR INC
Approved: Dec 15, 1983 | RLD: No | RS: No | Type: DISCN